FAERS Safety Report 20524676 (Version 1)
Quarter: 2022Q1

REPORT INFORMATION
  Report Type: Spontaneous
  Country: US (occurrence: US)
  Receive Date: 20220228
  Receipt Date: 20220228
  Transmission Date: 20220423
  Serious: Yes (Hospitalization, Other)
  Sender: FDA-Public Use
  Company Number: US-APOTEX-2022AP003760

PATIENT
  Age: 44 Year
  Sex: Male

DRUGS (1)
  1. DASATINIB [Suspect]
     Active Substance: DASATINIB
     Indication: Chronic myeloid leukaemia
     Dosage: UNK
     Route: 065

REACTIONS (8)
  - Cardiogenic shock [Recovering/Resolving]
  - Pulmonary arterial hypertension [Recovering/Resolving]
  - Pulmonary vascular disorder [Unknown]
  - Toxicity to various agents [Unknown]
  - Pleural effusion [Unknown]
  - Abdominal distension [Unknown]
  - Weight increased [Unknown]
  - Dyspnoea [Unknown]
